FAERS Safety Report 9036346 (Version 1)
Quarter: 2013Q1

REPORT INFORMATION
  Report Type: Spontaneous
  Country: US (occurrence: None)
  Receive Date: 20130123
  Receipt Date: 20130123
  Transmission Date: 20140127
  Serious: Yes (Other)
  Sender: FDA-Public Use
  Company Number: None

PATIENT
  Age: 21 Year
  Sex: Male
  Weight: 131.5 kg

DRUGS (1)
  1. VANCOMYCIN [Suspect]
     Route: 042

REACTIONS (2)
  - White blood cell count decreased [None]
  - Neutrophil count decreased [None]
